FAERS Safety Report 5999652-4 (Version None)
Quarter: 2008Q4

REPORT INFORMATION
  Report Type: 
  Country: None (occurrence: None)
  Receive Date: 20081210
  Receipt Date: 20071227
  Transmission Date: 20090506
  Serious: Yes (Other)
  Sender: FDA-Public Use
  Company Number: 43898

PATIENT
  Age: 58 Year
  Sex: Female
  Weight: 68 kg

DRUGS (2)
  1. ETOMIDATE [Suspect]
     Indication: SEDATION
     Dosage: 12MG IVP
     Route: 042
     Dates: start: 20071227
  2. VERSED [Concomitant]

REACTIONS (1)
  - EXTRAVASATION [None]
